FAERS Safety Report 8294792-1 (Version None)
Quarter: 2012Q2

REPORT INFORMATION
  Report Type: 
  Country: None (occurrence: None)
  Receive Date: 20120418
  Receipt Date: 20120413
  Transmission Date: 20120825
  Serious: Yes (Other)
  Sender: FDA-Public Use
  Company Number: PHEH2012US004791

PATIENT
  Sex: Female

DRUGS (3)
  1. INFLUENZA VACCINE [Concomitant]
  2. TEKTURNA [Suspect]
     Dosage: UNK UKN, UNK
  3. VALTURNA [Suspect]
     Dosage: UNK UKN, UNK

REACTIONS (4)
  - INFECTION [None]
  - TOOTH DISORDER [None]
  - LIMB DISCOMFORT [None]
  - GAIT DISTURBANCE [None]
